FAERS Safety Report 8901846 (Version 1)
Quarter: 2012Q4

REPORT INFORMATION
  Report Type: Spontaneous
  Country: US (occurrence: None)
  Receive Date: 20121113
  Receipt Date: 20121113
  Transmission Date: 20130627
  Serious: Yes (Hospitalization)
  Sender: FDA-Public Use
  Company Number: None

PATIENT
  Age: 28 Year
  Sex: Male
  Weight: 115.67 kg

DRUGS (4)
  1. CELESTONE [Suspect]
     Indication: BACK PAIN
     Dates: start: 20121023, end: 20121023
  2. CELESTONE [Suspect]
     Indication: EPIDURAL INJECTION
     Dates: start: 20121023, end: 20121023
  3. OMNIPAQUE [Concomitant]
  4. LIDOCAIN [Concomitant]

REACTIONS (2)
  - Headache [None]
  - Neck pain [None]
